FAERS Safety Report 21163031 (Version 1)
Quarter: 2022Q3

REPORT INFORMATION
  Report Type: Spontaneous
  Country: NO (occurrence: NO)
  Receive Date: 20220802
  Receipt Date: 20220802
  Transmission Date: 20221027
  Serious: Yes (Hospitalization, Other)
  Sender: FDA-Public Use
  Company Number: NO-AMGEN-NORSP2022129116

PATIENT

DRUGS (14)
  1. FILGRASTIM [Suspect]
     Active Substance: FILGRASTIM
     Indication: Autologous haematopoietic stem cell transplant
     Dosage: UNK, 5 TO 10 MICROGRAM/KG
     Route: 065
  2. ALEMTUZUMAB [Concomitant]
     Active Substance: ALEMTUZUMAB
  3. CLADRIBINE [Concomitant]
     Active Substance: CLADRIBINE
  4. OCRELIZUMAB [Concomitant]
     Active Substance: OCRELIZUMAB
  5. CYCLOPHOSPHAMIDE [Concomitant]
     Active Substance: CYCLOPHOSPHAMIDE
     Dosage: 2 GRAM PER SQUARE METRE, QD
  6. INTERFERON [Concomitant]
     Active Substance: INTERFERON
  7. GLATIRAMER ACETATE [Concomitant]
     Active Substance: GLATIRAMER ACETATE
  8. FINGOLIMOD HYDROCHLORIDE [Concomitant]
     Active Substance: FINGOLIMOD HYDROCHLORIDE
  9. NATALIZUMAB [Concomitant]
     Active Substance: NATALIZUMAB
  10. DIMETHYL FUMARATE [Concomitant]
     Active Substance: DIMETHYL FUMARATE
  11. TERIFLUNOMIDE [Concomitant]
     Active Substance: TERIFLUNOMIDE
  12. RITUXIMAB [Concomitant]
     Active Substance: RITUXIMAB
  13. THYMOCYTE IMMUNE GLOBULIN NOS [Concomitant]
     Active Substance: THYMOCYTE IMMUNE GLOBULIN NOS
     Dosage: 6 MILLIGRAM/KILOGRAM
  14. FINGOLIMOD [Concomitant]
     Active Substance: FINGOLIMOD

REACTIONS (14)
  - Unevaluable event [Unknown]
  - Febrile neutropenia [Unknown]
  - Hypotonia [Unknown]
  - Epstein-Barr virus infection reactivation [Unknown]
  - Psychotic disorder [Recovered/Resolved]
  - Venous thrombosis [Unknown]
  - Hyperthyroidism [Unknown]
  - Hypothyroidism [Unknown]
  - Autoimmune disorder [Unknown]
  - Immune thrombocytopenia [Unknown]
  - Multiple sclerosis relapse [Unknown]
  - Sepsis [Unknown]
  - Pyrexia [Recovered/Resolved]
  - Psoriasis [Unknown]
